FAERS Safety Report 12701058 (Version 1)
Quarter: 2016Q3

REPORT INFORMATION
  Report Type: Spontaneous
  Country: MX (occurrence: MX)
  Receive Date: 20160831
  Receipt Date: 20160831
  Transmission Date: 20161109
  Serious: Yes (Other)
  Sender: FDA-Public Use
  Company Number: MX-ROCHE-1822284

PATIENT
  Sex: Female
  Weight: 61 kg

DRUGS (3)
  1. CLONAZEPAM. [Suspect]
     Active Substance: CLONAZEPAM
     Indication: INSOMNIA
     Route: 048
  2. LEXOTAN [Suspect]
     Active Substance: BROMAZEPAM
     Dosage: 0-0-1
     Route: 060
     Dates: start: 1985, end: 201602
  3. LEXOTAN [Suspect]
     Active Substance: BROMAZEPAM
     Indication: INSOMNIA
     Dosage: 0-0-1
     Route: 060
     Dates: start: 20160825

REACTIONS (11)
  - Nervousness [Recovering/Resolving]
  - Drug interaction [Unknown]
  - Hunger [Recovering/Resolving]
  - Insomnia [Recovering/Resolving]
  - Muscular weakness [Not Recovered/Not Resolved]
  - Fall [Unknown]
  - Hallucination [Unknown]
  - Blindness [Not Recovered/Not Resolved]
  - Drug dependence [Unknown]
  - Upper limb fracture [Recovered/Resolved]
  - Nightmare [Recovering/Resolving]

NARRATIVE: CASE EVENT DATE: 2001
